FAERS Safety Report 20904693 (Version 1)
Quarter: 2022Q2

REPORT INFORMATION
  Report Type: Spontaneous
  Country: US (occurrence: US)
  Receive Date: 20220602
  Receipt Date: 20220602
  Transmission Date: 20220721
  Serious: Yes (Other)
  Sender: FDA-Public Use
  Company Number: US-CELLTRION INC.-2022US007953

PATIENT

DRUGS (1)
  1. TRUXIMA [Suspect]
     Active Substance: RITUXIMAB-ABBS
     Indication: Plasma cell myeloma
     Dosage: 660 MG ONCE A WEEK (MOST RECENT THERAPY DATE: 05/23/2022)
     Dates: start: 20220523

REACTIONS (2)
  - Plasma cell myeloma [Unknown]
  - Off label use [Unknown]
